FAERS Safety Report 5946880-X (Version None)
Quarter: 2008Q4

REPORT INFORMATION
  Report Type: 
  Country: None (occurrence: None)
  Receive Date: 20081107
  Receipt Date: 20081107
  Transmission Date: 20090506
  Serious: Yes (Hospitalization)
  Sender: FDA-Public Use
  Company Number: None

PATIENT
  Age: 90 Year
  Sex: Female
  Weight: 69 kg

DRUGS (2)
  1. ASPIRIN [Suspect]
     Indication: ISCHAEMIC HEART DISEASE PROPHYLAXIS
     Dosage: 81 MG ONCE DAILY PO
     Route: 048
  2. PAXIL [Suspect]
     Indication: DEPRESSION

REACTIONS (5)
  - ANAEMIA [None]
  - DYSPNOEA [None]
  - HYPOTENSION [None]
  - MELAENA [None]
  - TACHYCARDIA [None]
